FAERS Safety Report 8597686-7 (Version None)
Quarter: 2012Q3

REPORT INFORMATION
  Report Type: 
  Country: None (occurrence: None)
  Receive Date: 20120816
  Receipt Date: 20120810
  Transmission Date: 20120928
  Serious: Yes (Other)
  Sender: FDA-Public Use
  Company Number: US-PFIZER INC-2012195960

PATIENT
  Age: 45 Year
  Sex: Female
  Weight: 68 kg

DRUGS (2)
  1. LYRICA [Suspect]
     Indication: HERPES ZOSTER
     Dosage: 50 MG, 3X/DAY
     Route: 048
     Dates: start: 20120501, end: 20120501
  2. LYRICA [Suspect]
     Dosage: 100 MG, 3X/DAY
     Route: 048
     Dates: start: 20120501, end: 20120701

REACTIONS (6)
  - CATARACT [None]
  - WEIGHT INCREASED [None]
  - INTRAOCULAR PRESSURE TEST ABNORMAL [None]
  - VISION BLURRED [None]
  - SOMNOLENCE [None]
  - DRUG INEFFECTIVE [None]
